FAERS Safety Report 8513753-8 (Version None)
Quarter: 2012Q3

REPORT INFORMATION
  Report Type: 
  Country: None (occurrence: None)
  Receive Date: 20120705
  Receipt Date: 20120618
  Transmission Date: 20120928
  Serious: Yes (Disabling)
  Sender: FDA-Public Use
  Company Number: CF 1913151

PATIENT
  Age: 54 Year
  Sex: Female

DRUGS (9)
  1. ATORVASTATIN [Concomitant]
  2. LOSARTAN POTASSIUM [Concomitant]
  3. AMLODIPINE [Concomitant]
  4. POLYETHYLENE GLYCOL [Suspect]
     Indication: DRY EYE
     Dosage: 1 DROP AS NEEDED TO EYE
     Route: 047
     Dates: start: 20090101, end: 20120101
  5. METOPROLOL SUCCINATE [Concomitant]
  6. KOMBIGLYZE XR [Concomitant]
  7. POLYETHYLENE GLYCOL [Suspect]
     Indication: DRY EYE
     Dosage: 1 DROP AS NEEDED TO EYE
     Route: 047
     Dates: start: 20090101, end: 20120101
  8. ACUVUE OASYS SOFT LENSE FOR ASTIGMATISM [Concomitant]
  9. ALCON OPTIFREE REPLENISH MULTIPURPOSE SOLN [Concomitant]

REACTIONS (3)
  - KERATITIS [None]
  - FUSARIUM INFECTION [None]
  - HERPES SIMPLEX [None]
